FAERS Safety Report 24558217 (Version 1)
Quarter: 2024Q4

REPORT INFORMATION
  Report Type: Spontaneous
  Country: DE (occurrence: DE)
  Receive Date: 20241028
  Receipt Date: 20241028
  Transmission Date: 20250114
  Serious: Yes (Other)
  Sender: JOHNSON AND JOHNSON
  Company Number: DE-JNJFOC-20241067408

PATIENT
  Age: 64 Year
  Sex: Female

DRUGS (1)
  1. SPRAVATO [Suspect]
     Active Substance: ESKETAMINE
     Indication: Depression
     Dates: start: 2021

REACTIONS (4)
  - Hallucination, visual [Unknown]
  - Hypoaesthesia oral [Unknown]
  - Micturition urgency [Unknown]
  - Depression [Unknown]

NARRATIVE: CASE EVENT DATE: 20210101
